FAERS Safety Report 16363367 (Version 1)
Quarter: 2019Q2

REPORT INFORMATION
  Report Type: Spontaneous
  Country: FR (occurrence: FR)
  Receive Date: 20190528
  Receipt Date: 20190528
  Transmission Date: 20190711
  Serious: Yes (Hospitalization)
  Sender: FDA-Public Use
  Company Number: FR-MYLANLABS-2019M1048765

PATIENT
  Age: 86 Year
  Sex: Female
  Weight: 46 kg

DRUGS (4)
  1. PRINCI B                           /01262901/ [Suspect]
     Active Substance: PYRIDOXINE\THIAMINE
     Indication: STARVATION
     Dosage: 4 DOSAGE FORM, QD
     Route: 048
     Dates: start: 20180902, end: 20180908
  2. FOLIC ACID. [Suspect]
     Active Substance: FOLIC ACID
     Indication: STARVATION
     Dosage: 10 MILLIGRAM, QD
     Route: 048
     Dates: start: 20180902, end: 20180908
  3. VENOFER [Suspect]
     Active Substance: IRON SUCROSE
     Indication: ANAEMIA
     Dosage: 3 AMPOULES TOUS LES 2 JOURS
     Route: 041
     Dates: start: 20180904, end: 20180910
  4. PANTOPRAZOLE [Suspect]
     Active Substance: PANTOPRAZOLE
     Indication: ENTERITIS
     Dosage: 40 MILLIGRAM, QD
     Route: 048
     Dates: start: 20180902, end: 20180910

REACTIONS (2)
  - Eosinophilia [Recovering/Resolving]
  - Toxic skin eruption [Recovering/Resolving]

NARRATIVE: CASE EVENT DATE: 20180906
